FAERS Safety Report 21442331 (Version 1)
Quarter: 2022Q4

REPORT INFORMATION
  Report Type: Report from Study
  Country: US (occurrence: US)
  Receive Date: 20221011
  Receipt Date: 20221011
  Transmission Date: 20230113
  Serious: Yes (Hospitalization, Other)
  Sender: FDA-Public Use
  Company Number: US-BEH-2022149240

PATIENT
  Age: 71 Year
  Sex: Male
  Weight: 70.295 kg

DRUGS (1)
  1. ZEMAIRA [Suspect]
     Active Substance: .ALPHA.1-PROTEINASE INHIBITOR HUMAN
     Indication: Alpha-1 antitrypsin deficiency
     Dosage: UNK
     Route: 065

REACTIONS (9)
  - Dysphagia [Unknown]
  - Swelling [Unknown]
  - Oesophageal food impaction [Unknown]
  - Pneumonia [Unknown]
  - Dyspnoea [Unknown]
  - Dysphagia [Unknown]
  - Abdominal pain upper [Unknown]
  - Oropharyngeal pain [Unknown]
  - Subdiaphragmatic abscess [Unknown]

NARRATIVE: CASE EVENT DATE: 20220101
